FAERS Safety Report 24213131 (Version 2)
Quarter: 2024Q3

REPORT INFORMATION
  Report Type: Spontaneous
  Country: JP (occurrence: JP)
  Receive Date: 20240815
  Receipt Date: 20240917
  Transmission Date: 20241017
  Serious: Yes (Death, Hospitalization)
  Sender: BAYER
  Company Number: JP-BAYER-2024A116993

PATIENT
  Age: 39 Year
  Sex: Female

DRUGS (7)
  1. ADEMPAS [Suspect]
     Active Substance: RIOCIGUAT
     Indication: Collagen disorder
     Dosage: 1.5 MG, TID
     Route: 048
     Dates: start: 201807, end: 202001
  2. ADEMPAS [Suspect]
     Active Substance: RIOCIGUAT
     Indication: Pulmonary arterial hypertension
  3. MACITENTAN [Concomitant]
     Active Substance: MACITENTAN
     Indication: Collagen disorder
     Dosage: 10 MG, QD
     Route: 048
     Dates: start: 2013, end: 202001
  4. MACITENTAN [Concomitant]
     Active Substance: MACITENTAN
     Indication: Pulmonary arterial hypertension
  5. SELEXIPAG [Concomitant]
     Active Substance: SELEXIPAG
     Indication: Collagen disorder
     Dosage: 2.0 MG, BID
     Route: 048
     Dates: start: 2017, end: 202001
  6. SELEXIPAG [Concomitant]
     Active Substance: SELEXIPAG
     Indication: Pulmonary arterial hypertension
  7. ILOPROST [Concomitant]
     Active Substance: ILOPROST
     Indication: Pulmonary arterial hypertension
     Dosage: 2.5 ?G, BID
     Route: 055
     Dates: start: 201905, end: 202001

REACTIONS (5)
  - Death [Fatal]
  - Right ventricular failure [Not Recovered/Not Resolved]
  - Ascites [Not Recovered/Not Resolved]
  - Gastrointestinal disorder [Not Recovered/Not Resolved]
  - Therapeutic product effect incomplete [Not Recovered/Not Resolved]

NARRATIVE: CASE EVENT DATE: 20190501
